FAERS Safety Report 15932771 (Version 1)
Quarter: 2019Q1

REPORT INFORMATION
  Report Type: Report from Study
  Country: US (occurrence: US)
  Receive Date: 20190207
  Receipt Date: 20190207
  Transmission Date: 20190417
  Serious: No
  Sender: FDA-Public Use
  Company Number: US-SLATE RUN PHARMACEUTICALS-SLTR-AE-18-18

PATIENT
  Age: 34 Month

DRUGS (2)
  1. VITAMIN D [Concomitant]
     Active Substance: CHOLECALCIFEROL
  2. CINACALCET HYDROCHLORIDE TABLET [Suspect]
     Active Substance: CINACALCET HYDROCHLORIDE
     Indication: HYPERPARATHYROIDISM
     Route: 048

REACTIONS (4)
  - Catheter site haemorrhage [Unknown]
  - Vomiting [Unknown]
  - Device expulsion [Unknown]
  - Off label use [Recovered/Resolved]
